FAERS Safety Report 6441737-2 (Version None)
Quarter: 2009Q4

REPORT INFORMATION
  Report Type: 
  Country: None (occurrence: None)
  Receive Date: 20091116
  Receipt Date: 20091104
  Transmission Date: 20100525
  Serious: Yes (Other)
  Sender: FDA-Public Use
  Company Number: CA-PFIZER INC-2009293309

PATIENT
  Age: 80 Year
  Sex: Male
  Weight: 68 kg

DRUGS (8)
  1. CYKLOKAPRON [Suspect]
     Dosage: 2 G, CYCLIC
     Route: 042
  2. ULTIVA [Suspect]
     Dosage: 10 UG, SINGLE
     Route: 042
  3. ACETYLCYSTEINE [Concomitant]
     Route: 048
  4. ALLOPURINOL [Concomitant]
     Route: 048
  5. CEFAZOLIN [Concomitant]
     Route: 030
  6. LIPITOR [Concomitant]
     Route: 048
  7. METOPROLOL [Concomitant]
     Route: 048
  8. NORVASC [Concomitant]
     Route: 048

REACTIONS (1)
  - CONVULSION [None]
